FAERS Safety Report 8095220-1 (Version None)
Quarter: 2012Q1

REPORT INFORMATION
  Report Type: 
  Country: None (occurrence: None)
  Receive Date: 20120129
  Receipt Date: 20111229
  Transmission Date: 20120608
  Serious: No
  Sender: FDA-Public Use
  Company Number: US-ABBOTT-11P-163-0887798-00

PATIENT
  Age: 27 Year
  Sex: Female

DRUGS (2)
  1. PREDNISONE TAB [Concomitant]
     Indication: SARCOIDOSIS
     Route: 048
     Dates: start: 20110101
  2. HUMIRA [Suspect]
     Indication: SARCOIDOSIS
     Dates: start: 20111215

REACTIONS (3)
  - SYNCOPE [None]
  - NAUSEA [None]
  - DIZZINESS [None]
